FAERS Safety Report 9831934 (Version 1)
Quarter: 2014Q1

REPORT INFORMATION
  Report Type: Spontaneous
  Country: US (occurrence: US)
  Receive Date: 20140121
  Receipt Date: 20140121
  Transmission Date: 20141002
  Serious: No
  Sender: FDA-Public Use
  Company Number: US-PFIZER INC-2014015762

PATIENT
  Age: 38 Year
  Sex: Female
  Weight: 62.59 kg

DRUGS (1)
  1. EFFEXOR [Suspect]
     Indication: DEPRESSION
     Dosage: 228 MG, DAILY (ONE IN MORNING AND TWO AT NIGHT)

REACTIONS (1)
  - Therapeutic response unexpected [Unknown]
